FAERS Safety Report 6391095-7 (Version None)
Quarter: 2009Q4

REPORT INFORMATION
  Report Type: 
  Country: None (occurrence: None)
  Receive Date: 20091006
  Receipt Date: 20091006
  Transmission Date: 20100525
  Serious: Yes (Hospitalization)
  Sender: FDA-Public Use
  Company Number: None

PATIENT
  Age: 66 Year
  Sex: Male
  Weight: 61.4 kg

DRUGS (1)
  1. DIGOXIN [Suspect]
     Indication: ATRIAL FIBRILLATION
     Dosage: 0.125MG EVERY DAY PO
     Route: 048

REACTIONS (7)
  - DECREASED APPETITE [None]
  - HYPOTENSION [None]
  - NAUSEA [None]
  - SEPSIS [None]
  - THERAPEUTIC AGENT TOXICITY [None]
  - URINARY TRACT INFECTION [None]
  - VOMITING [None]
